FAERS Safety Report 14172706 (Version 1)
Quarter: 2017Q4

REPORT INFORMATION
  Report Type: Spontaneous
  Country: US (occurrence: None)
  Receive Date: 20171108
  Receipt Date: 20171108
  Transmission Date: 20180321
  Serious: Yes (Life-Threatening)
  Sender: FDA-Public Use
  Company Number: None

PATIENT
  Age: 64 Year
  Sex: Female
  Weight: 70.76 kg

DRUGS (10)
  1. GAVILYTE - C [Suspect]
     Active Substance: POLYETHYLENE GLYCOL 3350\POTASSIUM CHLORIDE\SODIUM BICARBONATE\SODIUM CHLORIDE\SODIUM SULFATE ANHYDROUS
     Indication: COLONOSCOPY
     Dosage: 240 GM MIXED WITH 4000ML WATER 4000ML DRINK 8 OZ. EVERY 15 MINUTES UNTIL GONE BY MOUTH
     Route: 048
     Dates: start: 20170926, end: 20170926
  2. PREDNISONE. [Concomitant]
     Active Substance: PREDNISONE
  3. BENADRYL [Concomitant]
     Active Substance: DIPHENHYDRAMINE HYDROCHLORIDE
  4. ASPIRIN EC [Concomitant]
     Active Substance: ASPIRIN
  5. PEPCID [Concomitant]
     Active Substance: FAMOTIDINE
  6. CENTRUM SILVER ADULTS 50+ [Concomitant]
     Active Substance: MINERALS\VITAMINS
  7. PRILOSEC [Suspect]
     Active Substance: OMEPRAZOLE MAGNESIUM
  8. VISTARIL [Concomitant]
     Active Substance: HYDROXYZINE PAMOATE
  9. LISINOPRIL. [Concomitant]
     Active Substance: LISINOPRIL
  10. CALCIUM + VITAMIN D3 [Concomitant]
     Active Substance: CALCIUM\CHOLECALCIFEROL

REACTIONS (10)
  - Swelling [None]
  - Dysphonia [None]
  - Erythema [None]
  - Dizziness [None]
  - Muscle twitching [None]
  - Pruritus [None]
  - Nasal congestion [None]
  - Sneezing [None]
  - Rhinorrhoea [None]
  - Urticaria [None]

NARRATIVE: CASE EVENT DATE: 20170926
